FAERS Safety Report 14056051 (Version 2)
Quarter: 2018Q1

REPORT INFORMATION
  Report Type: Other
  Country: IT (occurrence: IT)
  Receive Date: 20171006
  Receipt Date: 20180123
  Transmission Date: 20180508
  Serious: Yes (Hospitalization)
  Sender: FDA-Public Use
  Company Number: IT-VALIDUS PHARMACEUTICALS LLC-IT-2017VAL001402

PATIENT
  Age: 66 Year
  Sex: Female

DRUGS (3)
  1. LASIX [Suspect]
     Active Substance: FUROSEMIDE
     Indication: PLEURISY
     Dosage: 25 MG, QD
     Route: 048
     Dates: start: 20170901, end: 20170901
  2. LISINOPRIL. [Concomitant]
     Active Substance: LISINOPRIL
     Indication: PRODUCT USED FOR UNKNOWN INDICATION
     Dosage: UNK
  3. DELTACORTENE [Suspect]
     Active Substance: PREDNISONE
     Indication: PLEURISY
     Dosage: 5 MG, QD
     Route: 048
     Dates: start: 20170901, end: 20170901

REACTIONS (4)
  - Malaise [Unknown]
  - Pruritus generalised [Unknown]
  - Syncope [Unknown]
  - Hypersensitivity [Unknown]

NARRATIVE: CASE EVENT DATE: 20170901
